FAERS Safety Report 11222075 (Version 5)
Quarter: 2015Q3

REPORT INFORMATION
  Report Type: Report from Study
  Country: US (occurrence: US)
  Receive Date: 20150626
  Receipt Date: 20150910
  Transmission Date: 20151125
  Serious: Yes (Death, Hospitalization)
  Sender: FDA-Public Use
  Company Number: US-ACTELION-A-US2015-120047

PATIENT
  Age: 64 Year
  Sex: Female

DRUGS (6)
  1. INSULIN [Concomitant]
     Active Substance: INSULIN NOS
  2. VELETRI [Suspect]
     Active Substance: EPOPROSTENOL
     Indication: PULMONARY ARTERIAL HYPERTENSION
     Dosage: 48.3 NG/KG, PER MIN
     Route: 042
     Dates: start: 201303, end: 20150818
  3. FUROSEMIDE. [Concomitant]
     Active Substance: FUROSEMIDE
  4. ONDANSETRON [Concomitant]
     Active Substance: ONDANSETRON
  5. ALBUTEROL. [Concomitant]
     Active Substance: ALBUTEROL
  6. LEVOTHYROXINE. [Concomitant]
     Active Substance: LEVOTHYROXINE

REACTIONS (6)
  - Acute respiratory failure [Fatal]
  - Hip fracture [Recovering/Resolving]
  - Pulmonary arterial hypertension [Fatal]
  - Hip surgery [Recovering/Resolving]
  - Pneumonia [Fatal]
  - Fall [Recovering/Resolving]

NARRATIVE: CASE EVENT DATE: 20150614
